FAERS Safety Report 5169396-X (Version None)
Quarter: 2006Q4

REPORT INFORMATION
  Report Type: 
  Country: None (occurrence: None)
  Receive Date: 20061201
  Receipt Date: 20061120
  Transmission Date: 20070319
  Serious: No
  Sender: FDA-Public Use
  Company Number: 2006-05882

PATIENT
  Age: 58 Year
  Sex: Male

DRUGS (3)
  1. FLUOROURACIL [Suspect]
     Indication: HYPOPHARYNGEAL CANCER
     Dosage: 1000 MG/M2, DAILY FOR 4 DAYS
  2. PIRARUBICIN (PIRARUBICIN) [Concomitant]
  3. CISPLATIN [Concomitant]

REACTIONS (2)
  - DEAFNESS NEUROSENSORY [None]
  - LEUKOENCEPHALOPATHY [None]
